FAERS Safety Report 9720642 (Version 2)
Quarter: 2013Q4

REPORT INFORMATION
  Report Type: Spontaneous
  Country: RU (occurrence: RU)
  Receive Date: 20131129
  Receipt Date: 20131224
  Transmission Date: 20140711
  Serious: Yes (Life-Threatening, Hospitalization)
  Sender: FDA-Public Use
  Company Number: RU-SA-2013SA122848

PATIENT
  Sex: Male
  Weight: 55 kg

DRUGS (3)
  1. CEREZYME [Suspect]
     Indication: GAUCHER^S DISEASE
     Dosage: DOSE:21.8 UNIT(S)/KILOGRAM BODYWEIGHT
     Route: 042
     Dates: start: 20080622
  2. FERVEX [Concomitant]
     Indication: RESPIRATORY TRACT INFECTION
     Dosage: DOSE: 2 SACHES
     Route: 048
     Dates: start: 20131102, end: 20131104
  3. BUTENAFINE HYDROCHLORIDE [Concomitant]
     Indication: RESPIRATORY TRACT INFECTION
     Dosage: DOSE: 2 SACHES
     Route: 048

REACTIONS (5)
  - Renal failure chronic [Unknown]
  - Asthenia [Unknown]
  - Decreased appetite [Unknown]
  - Blood creatine increased [Unknown]
  - Pruritus [Unknown]
